FAERS Safety Report 10027449 (Version 2)
Quarter: 2014Q2

REPORT INFORMATION
  Report Type: Spontaneous
  Country: US (occurrence: US)
  Receive Date: 20140321
  Receipt Date: 20140424
  Transmission Date: 20141212
  Serious: No
  Sender: FDA-Public Use
  Company Number: US-PFIZER INC-2014079820

PATIENT
  Sex: Female

DRUGS (1)
  1. PREMPRO [Suspect]
     Indication: HOT FLUSH
     Dosage: UNK, ALTERNATE DAY

REACTIONS (3)
  - Nasopharyngitis [Unknown]
  - Dysphonia [Unknown]
  - Intentional product misuse [Unknown]
